FAERS Safety Report 7305409-4 (Version None)
Quarter: 2011Q1

REPORT INFORMATION
  Report Type: 
  Country: None (occurrence: None)
  Receive Date: 20110222
  Receipt Date: 20110219
  Transmission Date: 20110831
  Serious: Yes (Other)
  Sender: FDA-Public Use
  Company Number: US-PFIZER INC-2011036796

PATIENT
  Sex: Male
  Weight: 122.45 kg

DRUGS (3)
  1. CELEBREX [Suspect]
     Indication: PAIN
     Dosage: UNK
     Route: 048
     Dates: start: 20110216
  2. PRILOSEC [Concomitant]
     Dosage: UNK
  3. ALPRAZOLAM [Concomitant]
     Indication: BIPOLAR DISORDER
     Dosage: 8 MG, DAILY

REACTIONS (4)
  - MUSCULOSKELETAL STIFFNESS [None]
  - DRUG INEFFECTIVE [None]
  - NECK PAIN [None]
  - BACK PAIN [None]
